FAERS Safety Report 5527521-2 (Version None)
Quarter: 2007Q4

REPORT INFORMATION
  Report Type: 
  Country: None (occurrence: None)
  Receive Date: 20071121
  Receipt Date: 20071107
  Transmission Date: 20080405
  Serious: Yes (Hospitalization)
  Sender: FDA-Public Use
  Company Number: B0495850A

PATIENT
  Age: 10 Year
  Sex: Male

DRUGS (9)
  1. BECLOMETHASONE DIPROPIONATE            (GENERIC) (BECLOMETHASONE DIPRO [Suspect]
     Indication: ASTHMA
     Dosage: 42 UG/TWICE PER DAY/ SEE TEXT
  2. PREDNISONE                              (FORMULATION UNKNOWN) (PREDNIS [Suspect]
     Indication: ASTHMA
  3. METHYLPREDNISOLONE   (FORMULATION UNKNOWN)  (METHYLPREDNISOLONE) [Suspect]
     Indication: ASTHMA
  4. DEXAMETHASONE               (FORMULATION UNKNOWN) (DEXAMETHASONE) [Suspect]
     Indication: ASTHMA
  5. ALBUTEROL SULFATE [Concomitant]
  6. SODIUM CROMOGLYCATE [Concomitant]
  7. SALMETEROL XINAFOATE [Concomitant]
  8. CLARITHROMYCIN [Concomitant]
  9. IPRATROPIUM BROMIDE [Concomitant]

REACTIONS (21)
  - ANXIETY [None]
  - COGNITIVE DISORDER [None]
  - DEMENTIA [None]
  - DISTRACTIBILITY [None]
  - DISTURBANCE IN ATTENTION [None]
  - EDUCATIONAL PROBLEM [None]
  - GAIT DISTURBANCE [None]
  - HALLUCINATIONS, MIXED [None]
  - IRRITABILITY [None]
  - MAJOR DEPRESSION [None]
  - MEMORY IMPAIRMENT [None]
  - MOOD ALTERED [None]
  - MUSCLE TWITCHING [None]
  - MYOPATHY STEROID [None]
  - NERVOUS SYSTEM DISORDER [None]
  - NEUROTOXICITY [None]
  - PSYCHOTIC DISORDER [None]
  - SLUGGISHNESS [None]
  - STARING [None]
  - SWELLING FACE [None]
  - WHITE BLOOD CELL COUNT INCREASED [None]
